FAERS Safety Report 8450762-1 (Version None)
Quarter: 2012Q2

REPORT INFORMATION
  Report Type: 
  Country: None (occurrence: None)
  Receive Date: 20120613
  Receipt Date: 20120529
  Transmission Date: 20120825
  Serious: Yes (Other)
  Sender: FDA-Public Use
  Company Number: DSJ-2012-05649

PATIENT
  Age: 68 Year
  Sex: Male

DRUGS (4)
  1. BENICAR [Suspect]
     Indication: HYPERTENSION
     Dosage: 40 MG (20 MG, 2 IN 1 D), PER ORAL
     Route: 048
  2. INDAPAMIDE [Suspect]
     Indication: HYPERTENSION
     Dosage: 1.5 MG, PER ORAL
     Route: 048
     Dates: start: 20120101
  3. SIMETICONE (SIMETICONE) (SIMETICONE) [Suspect]
     Indication: CHOLELITHIASIS
     Dosage: 250 MG, PER ORAL
     Route: 048
     Dates: start: 20111101
  4. ATENOLOL AND CHLORTHALIDONE [Concomitant]

REACTIONS (8)
  - ASTHENIA [None]
  - BURNING SENSATION [None]
  - INTESTINAL POLYP [None]
  - CHOLELITHIASIS [None]
  - BRADYCARDIA [None]
  - DIZZINESS [None]
  - DEPRESSION [None]
  - CALCULUS URINARY [None]
